FAERS Safety Report 6563786-6 (Version None)
Quarter: 2010Q1

REPORT INFORMATION
  Report Type: 
  Country: None (occurrence: None)
  Receive Date: 20100130
  Receipt Date: 20091230
  Transmission Date: 20100710
  Serious: No
  Sender: FDA-Public Use
  Company Number: US-ABBOTT-10P-163-0617232-00

PATIENT
  Sex: Female
  Weight: 64.468 kg

DRUGS (13)
  1. HUMIRA [Suspect]
     Indication: CROHN'S DISEASE
     Route: 058
     Dates: start: 20090701, end: 20091001
  2. HUMIRA [Suspect]
     Indication: RHEUMATOID ARTHRITIS
     Dates: start: 20091001
  3. PREDNISONE [Concomitant]
     Indication: SKIN ULCER
     Route: 048
  4. IMURAN [Concomitant]
     Indication: DRUG USE FOR UNKNOWN INDICATION
     Route: 048
  5. FENTANYL [Concomitant]
     Indication: ARTHRALGIA
     Dosage: PATCH; Q3DAYS
     Route: 061
  6. NORTRIPTYLINE HCL [Concomitant]
     Indication: DIABETIC NEUROPATHY
     Dosage: 1 IN 1 DAY; MR TO 2/DAY PRN
     Route: 048
  7. TORSEMIDE [Concomitant]
     Indication: BLOOD PRESSURE
     Route: 048
  8. WARFARIN SODIUM [Concomitant]
     Indication: AORTIC VALVE REPLACEMENT
     Dosage: PER PT./INR
  9. VYTORIN [Concomitant]
     Indication: BLOOD CHOLESTEROL
     Dosage: 10/20; 1 IN 1 DAY
     Route: 048
  10. ATENOLOL [Concomitant]
     Indication: BLOOD PRESSURE
     Route: 048
  11. CYCLOBENZAPRINE [Concomitant]
     Indication: NEUROPATHY PERIPHERAL
     Route: 048
  12. PROMETHAZINE [Concomitant]
     Indication: NAUSEA
     Route: 048
  13. MEPERIDINE HCL [Concomitant]
     Indication: PAIN
     Dosage: Q4-6 HOURS AS NEEDED
     Route: 048

REACTIONS (8)
  - ARTHRALGIA [None]
  - BLOOD TEST ABNORMAL [None]
  - DIABETES MELLITUS [None]
  - GASTROINTESTINAL PAIN [None]
  - HYPOAESTHESIA [None]
  - INFLUENZA [None]
  - NASOPHARYNGITIS [None]
  - PAIN IN EXTREMITY [None]
